FAERS Safety Report 4777331-9 (Version None)
Quarter: 2005Q3

REPORT INFORMATION
  Report Type: 
  Country: None (occurrence: None)
  Receive Date: 20050915
  Receipt Date: 20050902
  Transmission Date: 20060218
  Serious: Yes (Other)
  Sender: FDA-Public Use
  Company Number: 005569

PATIENT
  Age: 36 Year
  Sex: Female
  Weight: 49.9 kg

DRUGS (4)
  1. SEASONALE [Suspect]
     Indication: MENSTRUAL DISORDER
     Dosage: 1 TABLET, QD, ORAL
     Route: 048
     Dates: start: 20050201, end: 20050811
  2. SEASONALE [Suspect]
     Indication: MIGRAINE
     Dosage: 1 TABLET, QD, ORAL
     Route: 048
     Dates: start: 20050201, end: 20050811
  3. XANAX [Concomitant]
  4. IMITREX ^GLAXO WELLCOME^ (SUMATRIPTAN SUCCINATE) TABLET [Concomitant]

REACTIONS (6)
  - ACUTE FEBRILE NEUTROPHILIC DERMATOSIS [None]
  - FATIGUE [None]
  - OEDEMA PERIPHERAL [None]
  - PAIN [None]
  - SCAR [None]
  - TREMOR [None]
